FAERS Safety Report 15591711 (Version 1)
Quarter: 2018Q4

REPORT INFORMATION
  Report Type: Spontaneous
  Country: BY (occurrence: BY)
  Receive Date: 20181107
  Receipt Date: 20181107
  Transmission Date: 20190205
  Serious: Yes (Other)
  Sender: FDA-Public Use
  Company Number: BY-PFIZER INC-2018455453

PATIENT
  Age: 49 Year
  Sex: Male
  Weight: 187.98 kg

DRUGS (13)
  1. DELAMANID [Suspect]
     Active Substance: DELAMANID
     Indication: TUBERCULOSIS
     Dosage: UNK UNK, 1X/DAY (200 QD)
     Route: 048
     Dates: start: 20170426, end: 20180723
  2. DELAMANID [Suspect]
     Active Substance: DELAMANID
     Dosage: UNK UNK, 1X/DAY (200 QD)
     Route: 048
     Dates: start: 20180807
  3. CILASTATIN SODIUM/IMIPENEM [Suspect]
     Active Substance: CILASTATIN SODIUM\IMIPENEM
     Dosage: UNK, 1X/DAY (2000 QD)
     Dates: start: 20180807
  4. MOXIFLOXACIN. [Suspect]
     Active Substance: MOXIFLOXACIN
     Dosage: UNK, 1X/DAY (400 QD)
     Route: 048
     Dates: start: 20180807
  5. AMOXICILLIN CLAVULANIC ACID [Suspect]
     Active Substance: AMOXICILLIN\CLAVULANIC ACID
     Dosage: UNK, 1X/DAY (2500 QD)
     Route: 048
     Dates: start: 20180807
  6. CILASTATIN SODIUM/IMIPENEM [Suspect]
     Active Substance: CILASTATIN SODIUM\IMIPENEM
     Indication: TUBERCULOSIS
     Dosage: UNK, 1X/DAY (2000 QD)
     Route: 042
     Dates: start: 20170426, end: 20180723
  7. AMOXICILLIN CLAVULANIC ACID [Suspect]
     Active Substance: AMOXICILLIN\CLAVULANIC ACID
     Indication: TUBERCULOSIS
     Dosage: UNK, 1X/DAY (2500 QD)
     Route: 048
     Dates: start: 20170426, end: 20180723
  8. LINEZOLID. [Suspect]
     Active Substance: LINEZOLID
     Indication: TUBERCULOSIS
     Dosage: UNK UNK, 1X/DAY (600 QD)
     Route: 048
     Dates: start: 20170426, end: 20180723
  9. PYRIDOXINE [Concomitant]
     Active Substance: PYRIDOXINE
     Dosage: 50 MG, UNK
     Dates: start: 20170426
  10. LINEZOLID. [Suspect]
     Active Substance: LINEZOLID
     Dosage: UNK UNK, 1X/DAY (600 QD)
     Route: 048
     Dates: start: 20180807
  11. CLOFAZIMINE [Suspect]
     Active Substance: CLOFAZIMINE
     Indication: TUBERCULOSIS
     Dosage: UNK, 1X/DAY (100 QD)
     Route: 048
     Dates: start: 20170426, end: 20180723
  12. CLOFAZIMINE [Suspect]
     Active Substance: CLOFAZIMINE
     Dosage: UNK, 1X/DAY (100 QD)
     Route: 048
     Dates: start: 20180807
  13. MOXIFLOXACIN. [Suspect]
     Active Substance: MOXIFLOXACIN
     Indication: TUBERCULOSIS
     Dosage: UNK, 1X/DAY (400 QD)
     Route: 048
     Dates: start: 20170426, end: 20180723

REACTIONS (5)
  - Incorrect product administration duration [Unknown]
  - Alcohol poisoning [Unknown]
  - Platelet count decreased [Unknown]
  - Hepatitis toxic [Recovered/Resolved]
  - Red blood cell count decreased [Unknown]

NARRATIVE: CASE EVENT DATE: 20180205
